FAERS Safety Report 5323791-4 (Version None)
Quarter: 2007Q2

REPORT INFORMATION
  Report Type: 
  Country: None (occurrence: None)
  Receive Date: 20070509
  Receipt Date: 20070509
  Transmission Date: 20071010
  Serious: Yes (Hospitalization)
  Sender: FDA-Public Use
  Company Number: None

PATIENT
  Sex: Female
  Weight: 49.1 kg

DRUGS (2)
  1. TEMOZOLOMIDE [Suspect]
     Dosage: 2900 MG
  2. DECADRON [Concomitant]

REACTIONS (7)
  - ANAEMIA [None]
  - CHILLS [None]
  - DRUG TOXICITY [None]
  - GENITAL HERPES [None]
  - LEUKOPENIA [None]
  - PLATELET COUNT DECREASED [None]
  - PYREXIA [None]
